FAERS Safety Report 4527848-7 (Version None)
Quarter: 2004Q4

REPORT INFORMATION
  Report Type: 
  Country: None (occurrence: None)
  Receive Date: 20041202
  Receipt Date: 20040921
  Transmission Date: 20050328
  Serious: No
  Sender: FDA-Public Use
  Company Number: 200420579BWH

PATIENT
  Age: 75 Year
  Sex: Male
  Weight: 88.4514 kg

DRUGS (7)
  1. LEVITRA [Suspect]
     Indication: ERECTILE DYSFUNCTION
     Dosage: 20 MG, PRN, ORAL; SEE IMAGE
     Route: 048
     Dates: start: 20040904
  2. LEVITRA [Suspect]
     Indication: ERECTILE DYSFUNCTION
     Dosage: 20 MG, PRN, ORAL; SEE IMAGE
     Route: 048
     Dates: start: 20040920
  3. LIPITOR [Concomitant]
  4. DOXAZOSIN MESYLATE [Concomitant]
  5. PREVENTATIVE FOR HIGH CHOLESTEROL [Concomitant]
  6. VIAGRA [Concomitant]
  7. CIALIS [Concomitant]

REACTIONS (4)
  - ASTHENIA [None]
  - BACK PAIN [None]
  - CHEST PAIN [None]
  - HEADACHE [None]
